FAERS Safety Report 11156676 (Version 1)
Quarter: 2015Q2

REPORT INFORMATION
  Report Type: Spontaneous
  Country: US (occurrence: None)
  Receive Date: 20150601
  Receipt Date: 20150601
  Transmission Date: 20150821
  Serious: Yes (Life-Threatening, Other)
  Sender: FDA-Public Use
  Company Number: None

PATIENT
  Age: 46 Year
  Sex: Male
  Weight: 146.51 kg

DRUGS (11)
  1. MELATONIN [Concomitant]
     Active Substance: MELATONIN
  2. METAMUCIL [Concomitant]
     Active Substance: PLANTAGO SEED
  3. MONTELUKAST [Concomitant]
     Active Substance: MONTELUKAST SODIUM
  4. UNISOM PM PAIN [Concomitant]
  5. ZOLPIDEM [Suspect]
     Active Substance: ZOLPIDEM\ZOLPIDEM TARTRATE
     Indication: INSOMNIA
     Route: 048
     Dates: start: 20150101, end: 20150528
  6. ALLERGY SHOT [Concomitant]
     Active Substance: UNSPECIFIED INGREDIENT
  7. ZYRTEC [Concomitant]
     Active Substance: CETIRIZINE HYDROCHLORIDE
  8. PAROXETINE [Concomitant]
     Active Substance: PAROXETINE\PAROXETINE HYDROCHLORIDE
  9. FLUCTICASONE [Concomitant]
  10. HYDROCODONE [Concomitant]
     Active Substance: HYDROCODONE
  11. ALEVE [Concomitant]
     Active Substance: NAPROXEN SODIUM

REACTIONS (5)
  - Incoherent [None]
  - Memory impairment [None]
  - Abnormal behaviour [None]
  - Road traffic accident [None]
  - Insomnia [None]

NARRATIVE: CASE EVENT DATE: 20150528
